FAERS Safety Report 4704374-3 (Version None)
Quarter: 2005Q2

REPORT INFORMATION
  Report Type: 
  Country: None (occurrence: None)
  Receive Date: 20050628
  Receipt Date: 20050617
  Transmission Date: 20051028
  Serious: Yes (Hospitalization)
  Sender: FDA-Public Use
  Company Number: 200510425BFR

PATIENT
  Age: 4 Year
  Sex: Male

DRUGS (14)
  1. CIFLOX (CIPROFLOXACIN) [Suspect]
     Indication: LUNG DISORDER
     Dates: start: 20050510, end: 20050519
  2. CLAMOXYL (AMOXICILLIN) [Suspect]
     Indication: LUNG DISORDER
     Dates: start: 20050510, end: 20050519
  3. ASPEGIC 1000 [Suspect]
     Dates: start: 20010101, end: 20050519
  4. LASIX [Suspect]
     Dates: start: 20010101, end: 20050527
  5. MAXOMAT [Suspect]
     Indication: GROWTH RETARDATION
     Dates: start: 20050101, end: 20050518
  6. SINGULAIR [Suspect]
     Dates: start: 20050501, end: 20050501
  7. SINGULAIR [Suspect]
     Dates: start: 20050524, end: 20050527
  8. FORLAX (MACROGOL) [Suspect]
     Dates: start: 20041201, end: 20050101
  9. FORLAX (MACROGOL) [Suspect]
     Dates: start: 20050525, end: 20050527
  10. CAPTOPRIL [Suspect]
     Dates: start: 20020101
  11. ATROVENT [Suspect]
     Dates: start: 20010101
  12. PULMICORT [Suspect]
     Dates: start: 20010101
  13. VENTOLIN [Suspect]
     Dates: start: 20010101
  14. MOTILIUM [Suspect]
     Dates: start: 20050301, end: 20050519

REACTIONS (1)
  - THROMBOCYTOPENIA [None]
